FAERS Safety Report 8890778 (Version 2)
Quarter: 2012Q4

REPORT INFORMATION
  Report Type: 
  Country: US (occurrence: US)
  Receive Date: 20121106
  Receipt Date: 20121206
  Transmission Date: 20130627
  Serious: Yes (Other)
  Sender: FDA-Public Use
  Company Number: US-VERTEX PHARMACEUTICAL INC.-2012-024074

PATIENT
  Sex: Male

DRUGS (3)
  1. INCIVEK [Suspect]
     Indication: HEPATITIS C
     Dosage: 750 mg, tid
     Route: 048
     Dates: start: 201209
  2. RIBAVIRIN [Suspect]
     Indication: HEPATITIS C
     Dosage: 200 mg, bid
     Dates: start: 201209
  3. PEGASYS [Suspect]
     Indication: HEPATITIS C
     Dosage: 180 ?g, qw
     Dates: start: 201209

REACTIONS (15)
  - Blindness transient [Recovered/Resolved]
  - Dyspnoea [Recovered/Resolved]
  - Enuresis [Recovered/Resolved]
  - Anxiety [Unknown]
  - Paraesthesia [Recovered/Resolved]
  - Influenza like illness [Recovered/Resolved]
  - Epistaxis [Recovered/Resolved]
  - Weight increased [Recovered/Resolved]
  - Hot flush [Recovered/Resolved]
  - Crying [Recovered/Resolved]
  - Malaise [Recovered/Resolved]
  - Asthenia [Recovered/Resolved]
  - Fatigue [Recovered/Resolved]
  - Painful defaecation [Recovered/Resolved]
  - Anal haemorrhage [Recovered/Resolved]
